FAERS Safety Report 7020837-2 (Version None)
Quarter: 2010Q3

REPORT INFORMATION
  Report Type: 
  Country: None (occurrence: None)
  Receive Date: 20100929
  Receipt Date: 20100922
  Transmission Date: 20110219
  Serious: Yes (Other)
  Sender: FDA-Public Use
  Company Number: JP-PFIZER INC-2010117066

PATIENT
  Age: 57 Year
  Sex: Male

DRUGS (2)
  1. CHAMPIX [Suspect]
     Dosage: 1 MG, 2X/DAY
     Dates: start: 20100906, end: 20100918
  2. NU LOTAN [Suspect]
     Dosage: 50MG PER DAY
     Route: 048
     Dates: start: 20100910, end: 20100916

REACTIONS (2)
  - EYELID OEDEMA [None]
  - FACE OEDEMA [None]
